FAERS Safety Report 15476019 (Version 2)
Quarter: 2018Q4

REPORT INFORMATION
  Report Type: Spontaneous
  Country: JP (occurrence: JP)
  Receive Date: 20181009
  Receipt Date: 20181009
  Transmission Date: 20190205
  Serious: Yes (Death)
  Sender: FDA-Public Use
  Company Number: GXJP2018JP001523

PATIENT
  Sex: Male

DRUGS (3)
  1. PREDNISOLONE. [Suspect]
     Active Substance: PREDNISOLONE
     Indication: THROMBOCYTOPENIC PURPURA
     Route: 065
  2. RITUXIMAB. [Suspect]
     Active Substance: RITUXIMAB
     Indication: THROMBOCYTOPENIC PURPURA
     Route: 065
  3. ROMIPLOSTIM [Suspect]
     Active Substance: ROMIPLOSTIM
     Indication: THROMBOCYTOPENIC PURPURA
     Route: 065

REACTIONS (9)
  - Jaundice [Fatal]
  - Rash [Fatal]
  - Product use in unapproved indication [Unknown]
  - Pyrexia [Fatal]
  - Cardio-respiratory arrest [Fatal]
  - Disseminated intravascular coagulation [Fatal]
  - Multiple organ dysfunction syndrome [Fatal]
  - Purpura fulminans [Fatal]
  - Septic shock [Fatal]
